FAERS Safety Report 24054120 (Version 1)
Quarter: 2024Q3

REPORT INFORMATION
  Report Type: Spontaneous
  Country: US (occurrence: US)
  Receive Date: 20240705
  Receipt Date: 20240705
  Transmission Date: 20241017
  Serious: Yes (Hospitalization, Other)
  Sender: Unknown Manufacturer
  Company Number: US-862174955-ML2024-03713

PATIENT
  Age: 92 Year
  Sex: Male

DRUGS (1)
  1. SEVELAMER [Suspect]
     Active Substance: SEVELAMER
     Indication: Chronic kidney disease
     Route: 048

REACTIONS (3)
  - Gastritis erosive [Unknown]
  - Oesophagitis ulcerative [Unknown]
  - Gastrointestinal haemorrhage [Unknown]
